FAERS Safety Report 12253108 (Version 6)
Quarter: 2017Q4

REPORT INFORMATION
  Report Type: Report from Study
  Country: JP (occurrence: JP)
  Receive Date: 20160411
  Receipt Date: 20171003
  Transmission Date: 20180320
  Serious: Yes (Death, Other)
  Sender: FDA-Public Use
  Company Number: JP-BRISTOL-MYERS SQUIBB COMPANY-BMS-2016-026742

PATIENT
  Age: 55 Year
  Sex: Male

DRUGS (2)
  1. NIVOLUMAB [Suspect]
     Active Substance: NIVOLUMAB
     Indication: PRODUCT USED FOR UNKNOWN INDICATION
     Dosage: 3 MG/KG, UNK
     Route: 041
     Dates: start: 20160330, end: 20160330
  2. NIVOLUMAB [Suspect]
     Active Substance: NIVOLUMAB
     Indication: NON-SMALL CELL LUNG CANCER RECURRENT
     Dosage: 3 MG/KG, UNK
     Route: 041
     Dates: start: 20160316, end: 20160316

REACTIONS (5)
  - Rhabdomyolysis [Recovered/Resolved]
  - Respiratory disorder [Unknown]
  - Interstitial lung disease [Unknown]
  - Malignant neoplasm progression [Fatal]
  - Dyspnoea [Unknown]

NARRATIVE: CASE EVENT DATE: 20160316
